FAERS Safety Report 7593439-7 (Version None)
Quarter: 2011Q3

REPORT INFORMATION
  Report Type: 
  Country: None (occurrence: None)
  Receive Date: 20110706
  Receipt Date: 20110630
  Transmission Date: 20111222
  Serious: Yes (Hospitalization)
  Sender: FDA-Public Use
  Company Number: US-MERCK-1105USA01698

PATIENT
  Age: 61 Year
  Sex: Female

DRUGS (2)
  1. FOSAMAX [Suspect]
     Indication: OSTEOPOROSIS
     Route: 048
     Dates: start: 20020101, end: 20070101
  2. ZOMETA [Concomitant]
     Indication: OSTEOPOROSIS
     Route: 051
     Dates: start: 20091022

REACTIONS (8)
  - HYPERTENSION [None]
  - TOOTH DISORDER [None]
  - DYSPEPSIA [None]
  - URINE CALCIUM [None]
  - MIGRAINE [None]
  - GINGIVAL DISORDER [None]
  - FEMUR FRACTURE [None]
  - BLOOD DISORDER [None]
